FAERS Safety Report 19430026 (Version 3)
Quarter: 2021Q3

REPORT INFORMATION
  Report Type: Spontaneous
  Country: DE (occurrence: DE)
  Receive Date: 20210617
  Receipt Date: 20210708
  Transmission Date: 20211014
  Serious: Yes (Hospitalization, Other)
  Sender: FDA-Public Use
  Company Number: NVSC2021DE134449

PATIENT
  Age: 26 Year
  Sex: Male
  Weight: 83 kg

DRUGS (2)
  1. AMLODIPINE [Suspect]
     Active Substance: AMLODIPINE BESYLATE
     Indication: PRODUCT USED FOR UNKNOWN INDICATION
     Dosage: 500 MG, UNKNOWN
     Route: 065
  2. RAMIPRIL. [Suspect]
     Active Substance: RAMIPRIL
     Indication: PRODUCT USED FOR UNKNOWN INDICATION
     Dosage: 700 MG, UNKNOWN
     Route: 065

REACTIONS (10)
  - Intentional product misuse [Unknown]
  - Toxicity to various agents [Recovered/Resolved]
  - Pulmonary congestion [Recovering/Resolving]
  - Atrial fibrillation [Recovering/Resolving]
  - Pleural effusion [Recovering/Resolving]
  - Cardiovascular insufficiency [Recovering/Resolving]
  - Suicide attempt [Recovering/Resolving]
  - Distributive shock [Recovered/Resolved]
  - Intentional overdose [Unknown]
  - Shock [Recovering/Resolving]
